FAERS Safety Report 9046993 (Version 1)
Quarter: 2013Q1

REPORT INFORMATION
  Report Type: Spontaneous
  Country: US (occurrence: None)
  Receive Date: 20130129
  Receipt Date: 20130129
  Transmission Date: 20140127
  Serious: Yes (Other)
  Sender: FDA-Public Use
  Company Number: None

PATIENT
  Age: 71 Year
  Sex: Female
  Weight: 50 kg

DRUGS (9)
  1. SAMSCA [Suspect]
     Indication: HYPONATRAEMIA
     Route: 048
     Dates: start: 20120810, end: 20120816
  2. SAMSCA [Suspect]
     Route: 048
     Dates: start: 20120810, end: 20120816
  3. LEVOTHYROXINE [Concomitant]
  4. ADVAIR [Concomitant]
  5. TOBRAMYCIN [Concomitant]
  6. CEFEPIME [Concomitant]
  7. CIPROFLOXACIN [Concomitant]
  8. CYANCOBALAMIN [Concomitant]
  9. LOVENOX [Concomitant]

REACTIONS (1)
  - Pneumonia pseudomonas aeruginosa [None]
